FAERS Safety Report 20653289 (Version 1)
Quarter: 2022Q1

REPORT INFORMATION
  Report Type: Spontaneous
  Country: CN (occurrence: None)
  Receive Date: 20220330
  Receipt Date: 20220330
  Transmission Date: 20220424
  Serious: Yes (Other)
  Sender: FDA-Public Use
  Company Number: CN-ROCHE-3056468

PATIENT
  Age: 74 Year
  Sex: Male
  Weight: 58 kg

DRUGS (16)
  1. AVASTIN [Suspect]
     Active Substance: BEVACIZUMAB
     Indication: Adenocarcinoma of colon
     Route: 042
     Dates: start: 20201223
  2. AVASTIN [Suspect]
     Active Substance: BEVACIZUMAB
     Indication: Metastases to liver
  3. IRINOTECAN [Concomitant]
     Active Substance: IRINOTECAN
     Indication: Adenocarcinoma of colon
     Dates: start: 20201017, end: 20201209
  4. IRINOTECAN [Concomitant]
     Active Substance: IRINOTECAN
     Indication: Metastases to liver
     Dates: start: 20201223, end: 20210203
  5. LEUCOVORIN CALCIUM [Concomitant]
     Active Substance: LEUCOVORIN CALCIUM
     Indication: Adenocarcinoma of colon
     Dates: start: 20201017, end: 20201209
  6. LEUCOVORIN CALCIUM [Concomitant]
     Active Substance: LEUCOVORIN CALCIUM
     Indication: Metastases to liver
     Dates: start: 20201223, end: 20210203
  7. FLUOROURACIL [Concomitant]
     Active Substance: FLUOROURACIL
     Indication: Adenocarcinoma of colon
     Dosage: 0.65G DAY1; 3.75G
     Dates: start: 20201017, end: 20201209
  8. FLUOROURACIL [Concomitant]
     Active Substance: FLUOROURACIL
     Indication: Metastases to liver
     Dosage: 0.5G DAY1; 3.0G
     Dates: start: 20201223, end: 20210203
  9. TORIPALIMAB [Concomitant]
     Active Substance: TORIPALIMAB
     Indication: Adenocarcinoma of colon
     Dates: start: 20210325, end: 20210827
  10. TORIPALIMAB [Concomitant]
     Active Substance: TORIPALIMAB
     Indication: Metastases to liver
  11. REGORAFENIB [Concomitant]
     Active Substance: REGORAFENIB
     Indication: Adenocarcinoma of colon
     Dates: start: 20210325, end: 20210827
  12. REGORAFENIB [Concomitant]
     Active Substance: REGORAFENIB
     Indication: Metastases to liver
  13. OXALIPLATIN [Concomitant]
     Active Substance: OXALIPLATIN
     Indication: Adenocarcinoma of colon
     Dates: start: 20220314
  14. OXALIPLATIN [Concomitant]
     Active Substance: OXALIPLATIN
     Indication: Metastases to liver
  15. RALTITREXED [Concomitant]
     Active Substance: RALTITREXED
     Indication: Adenocarcinoma of colon
     Dates: start: 20220314
  16. RALTITREXED [Concomitant]
     Active Substance: RALTITREXED
     Indication: Metastases to liver

REACTIONS (3)
  - Immune-mediated hepatitis [Recovering/Resolving]
  - Immune-mediated lung disease [Unknown]
  - Pneumonia [Unknown]

NARRATIVE: CASE EVENT DATE: 20210910
